FAERS Safety Report 18578211 (Version 1)
Quarter: 2020Q4

REPORT INFORMATION
  Report Type: Spontaneous
  Country: US (occurrence: US)
  Receive Date: 20201203
  Receipt Date: 20201203
  Transmission Date: 20210114
  Serious: Yes (Other)
  Sender: FDA-Public Use
  Company Number: None

PATIENT
  Age: 63 Year
  Sex: Female
  Weight: 108.9 kg

DRUGS (1)
  1. BAMLANIVIMAB. [Suspect]
     Active Substance: BAMLANIVIMAB
     Indication: COVID-19
     Route: 041
     Dates: start: 20201114, end: 20201114

REACTIONS (7)
  - Ear pain [None]
  - Intentional product use issue [None]
  - Chest discomfort [None]
  - Dizziness [None]
  - Cough [None]
  - Upper-airway cough syndrome [None]
  - Sinus pain [None]

NARRATIVE: CASE EVENT DATE: 20201122
